FAERS Safety Report 21077453 (Version 1)
Quarter: 2022Q3

REPORT INFORMATION
  Report Type: Spontaneous
  Country: ES (occurrence: ES)
  Receive Date: 20220713
  Receipt Date: 20220713
  Transmission Date: 20221026
  Serious: Yes (Other)
  Sender: FDA-Public Use
  Company Number: None

PATIENT
  Age: 90 Year
  Sex: Female

DRUGS (9)
  1. ARICEPT [Suspect]
     Active Substance: DONEPEZIL HYDROCHLORIDE
     Indication: Cognitive disorder
     Route: 048
     Dates: start: 20220329, end: 20220621
  2. ACETAMINOPHEN [Concomitant]
     Active Substance: ACETAMINOPHEN
     Indication: Product used for unknown indication
     Dosage: DOSE AND FREQUENCY UNKNOWN
     Route: 065
  3. MANIDIPINE HYDROCHLORIDE [Concomitant]
     Active Substance: MANIDIPINE HYDROCHLORIDE
     Indication: Product used for unknown indication
     Dosage: FREQUENCY UNKNOWN
     Route: 065
  4. COLCHICINE [Concomitant]
     Active Substance: COLCHICINE
     Indication: Product used for unknown indication
     Dosage: FREQUENCY UNKNOWN
     Route: 065
  5. LOSARTAN [Concomitant]
     Active Substance: LOSARTAN
     Indication: Product used for unknown indication
     Dosage: FREQUENCY UNKNOWN
     Route: 065
  6. ARCOXIA [Concomitant]
     Active Substance: ETORICOXIB
     Indication: Product used for unknown indication
     Dosage: FREQUENCY UNKNOWN
     Route: 065
  7. CITICOLINE [Concomitant]
     Active Substance: CITICOLINE
     Indication: Product used for unknown indication
     Dosage: DOSE AND FREQUENCY UNKNOWN
     Route: 065
  8. QUETIAPINE [Concomitant]
     Active Substance: QUETIAPINE
     Indication: Product used for unknown indication
     Dosage: FREQUENCY UNKNOWN
     Route: 065
  9. LORMETAZEPAM [Concomitant]
     Active Substance: LORMETAZEPAM
     Indication: Product used for unknown indication
     Dosage: FREQUENCY UNKNOWN
     Route: 065

REACTIONS (2)
  - Atrioventricular block first degree [Unknown]
  - Bradycardia [Unknown]

NARRATIVE: CASE EVENT DATE: 20220621
